FAERS Safety Report 21406157 (Version 2)
Quarter: 2023Q2

REPORT INFORMATION
  Report Type: Spontaneous
  Country: FR (occurrence: FR)
  Receive Date: 20221004
  Receipt Date: 20230522
  Transmission Date: 20230721
  Serious: Yes (Hospitalization, Other)
  Sender: FDA-Public Use
  Company Number: FR-BRISTOL-MYERS SQUIBB COMPANY-2022-107050

PATIENT
  Age: 75 Year
  Sex: Female

DRUGS (3)
  1. PREDNISONE [Suspect]
     Active Substance: PREDNISONE
     Indication: Renal transplant
     Dosage: 5 MILLIGRAM, ONCE A DAY
     Route: 065
  2. BELATACEPT [Suspect]
     Active Substance: BELATACEPT
     Indication: Renal transplant
     Dosage: UNK
     Route: 065
  3. MYCOPHENOLATE MOFETIL [Suspect]
     Active Substance: MYCOPHENOLATE MOFETIL
     Indication: Renal transplant
     Dosage: UNK
     Route: 065

REACTIONS (1)
  - Bacillary angiomatosis [Recovered/Resolved]
